FAERS Safety Report 9423636 (Version 2)
Quarter: 2014Q1

REPORT INFORMATION
  Report Type: Other
  Country: AU (occurrence: AU)
  Receive Date: 20130726
  Receipt Date: 20140129
  Transmission Date: 20141002
  Serious: Yes (Hospitalization, Other)
  Sender: FDA-Public Use
  Company Number: AU-RB-044766-12

PATIENT
  Age: 0 Day
  Sex: Female
  Weight: 3.22 kg

DRUGS (3)
  1. SUBUTEX [Suspect]
     Indication: DRUG DEPENDENCE
     Route: 064
     Dates: end: 20100201
  2. SUBUTEX [Suspect]
     Route: 063
     Dates: start: 201002
  3. BENZODIAZEPINES [Suspect]
     Indication: PRODUCT USED FOR UNKNOWN INDICATION
     Dosage: DOSE UNKNOWN
     Route: 064

REACTIONS (4)
  - Foetal exposure during pregnancy [Recovered/Resolved]
  - Drug withdrawal syndrome neonatal [Unknown]
  - Staphylococcal sepsis [Recovered/Resolved]
  - Exposure during breast feeding [Unknown]
